FAERS Safety Report 9437756 (Version 2)
Quarter: 2014Q1

REPORT INFORMATION
  Report Type: Spontaneous
  Country: US (occurrence: US)
  Receive Date: 20130802
  Receipt Date: 20140117
  Transmission Date: 20141002
  Serious: Yes (Hospitalization, Other)
  Sender: FDA-Public Use
  Company Number: US-BAYER-2013-093346

PATIENT
  Age: 32 Year
  Sex: Female
  Weight: 117.91 kg

DRUGS (2)
  1. MIRENA [Suspect]
     Indication: CONTRACEPTION
     Dosage: 20 MCG/24HR, CONT
     Route: 015
     Dates: start: 20080617, end: 20090715
  2. MIRENA [Suspect]
     Indication: MENORRHAGIA

REACTIONS (10)
  - Menometrorrhagia [None]
  - Device dislocation [None]
  - Injury [None]
  - Pain [None]
  - Abdominal pain lower [None]
  - Mood altered [None]
  - Night sweats [None]
  - Hot flush [None]
  - Premature menopause [None]
  - Device issue [None]
